FAERS Safety Report 13892235 (Version 2)
Quarter: 2017Q3

REPORT INFORMATION
  Report Type: Spontaneous
  Country: US (occurrence: US)
  Receive Date: 20170822
  Receipt Date: 20170919
  Transmission Date: 20171127
  Serious: Yes (Hospitalization)
  Sender: FDA-Public Use
  Company Number: US-ALKERMES INC.-ALK-2017-003364

PATIENT
  Age: 18 Year
  Sex: Male

DRUGS (1)
  1. VIVITROL [Suspect]
     Active Substance: NALTREXONE
     Indication: ALCOHOLISM
     Dosage: 380 MG, QMO
     Route: 030
     Dates: start: 20170725

REACTIONS (15)
  - Ocular icterus [Unknown]
  - Somnolence [Not Recovered/Not Resolved]
  - Hepatitis C [Not Recovered/Not Resolved]
  - Arthralgia [Unknown]
  - Depression [Unknown]
  - Nausea [Unknown]
  - Nasopharyngitis [Unknown]
  - Alcohol use [Recovered/Resolved]
  - Fatigue [Unknown]
  - Insomnia [Unknown]
  - Sensitivity of teeth [Unknown]
  - Pain [Not Recovered/Not Resolved]
  - Abdominal pain upper [Unknown]
  - Vomiting [Unknown]
  - Decreased appetite [Unknown]

NARRATIVE: CASE EVENT DATE: 20170725
